FAERS Safety Report 20879092 (Version 1)
Quarter: 2022Q2

REPORT INFORMATION
  Report Type: Spontaneous
  Country: US (occurrence: US)
  Receive Date: 20220526
  Receipt Date: 20220526
  Transmission Date: 20220721
  Serious: Yes (Hospitalization, Other)
  Sender: FDA-Public Use
  Company Number: US-AMGEN-USASP2022086956

PATIENT
  Age: 68 Year
  Sex: Male

DRUGS (4)
  1. PROLIA [Suspect]
     Active Substance: DENOSUMAB
     Indication: Hypercalcaemia
     Dosage: 60 MILLIGRAM
     Route: 058
  2. CYCLOPHOSPHAMIDE [Concomitant]
     Active Substance: CYCLOPHOSPHAMIDE
     Indication: Plasma cell myeloma
     Route: 065
  3. BORTEZOMIB [Concomitant]
     Active Substance: BORTEZOMIB
     Indication: Plasma cell myeloma
     Route: 065
  4. DEXAMETHASONE [Concomitant]
     Active Substance: DEXAMETHASONE
     Indication: Plasma cell myeloma
     Route: 065

REACTIONS (8)
  - Hypomagnesaemia [Recovering/Resolving]
  - Blood parathyroid hormone increased [Unknown]
  - Electrocardiogram QT prolonged [Unknown]
  - Vitamin D decreased [Unknown]
  - Glomerular filtration rate decreased [Unknown]
  - Cholelithiasis [Unknown]
  - Hypocalcaemia [Recovering/Resolving]
  - Off label use [Unknown]
